FAERS Safety Report 22891446 (Version 3)
Quarter: 2023Q4

REPORT INFORMATION
  Report Type: Spontaneous
  Country: US (occurrence: US)
  Receive Date: 20230901
  Receipt Date: 20231204
  Transmission Date: 20240110
  Serious: No
  Sender: FDA-Public Use
  Company Number: US-SA-SAC20230825001109

PATIENT
  Age: 36 Year
  Sex: Female

DRUGS (2)
  1. DUPIXENT [Suspect]
     Active Substance: DUPILUMAB
     Indication: Dermatitis atopic
     Dosage: 600 MG, 1X
     Route: 058
     Dates: start: 20230727, end: 20230727
  2. DUPIXENT [Suspect]
     Active Substance: DUPILUMAB
     Indication: Eczema
     Dosage: 300 MG, QOW
     Route: 058
     Dates: start: 20230807

REACTIONS (8)
  - Constipation [Unknown]
  - Limb discomfort [Unknown]
  - Rash vesicular [Recovering/Resolving]
  - Scab [Recovering/Resolving]
  - Dry skin [Unknown]
  - Skin exfoliation [Unknown]
  - Erythema [Recovering/Resolving]
  - Pruritus [Recovering/Resolving]

NARRATIVE: CASE EVENT DATE: 20230101
